FAERS Safety Report 4990335-6 (Version None)
Quarter: 2006Q2

REPORT INFORMATION
  Report Type: 
  Country: None (occurrence: None)
  Receive Date: 20060503
  Receipt Date: 20060427
  Transmission Date: 20061013
  Serious: Yes (Hospitalization, Disabling, Other)
  Sender: FDA-Public Use
  Company Number: 2006SE02426

PATIENT
  Age: 62 Year
  Sex: Male

DRUGS (8)
  1. BLOPRESS [Suspect]
     Indication: HYPERTENSION
     Route: 048
  2. BLOPRESS [Suspect]
     Route: 048
  3. BLOPRESS [Suspect]
     Route: 048
     Dates: start: 20050901, end: 20051230
  4. BLOPRESS [Suspect]
     Route: 048
     Dates: start: 20060101
  5. CONCOR [Concomitant]
     Route: 048
     Dates: end: 20050101
  6. CONCOR [Concomitant]
     Route: 048
     Dates: start: 20060101
  7. SELOKEN [Concomitant]
     Route: 065
     Dates: start: 20050101
  8. SELOKEN [Concomitant]
     Route: 065

REACTIONS (4)
  - ARRHYTHMIA [None]
  - ARTHRALGIA [None]
  - BACK PAIN [None]
  - MYALGIA [None]
